FAERS Safety Report 9669763 (Version 1)
Quarter: 2013Q4

REPORT INFORMATION
  Report Type: Report from Study
  Country: VE (occurrence: VE)
  Receive Date: 20131105
  Receipt Date: 20131105
  Transmission Date: 20140711
  Serious: Yes (Hospitalization, Other)
  Sender: FDA-Public Use
  Company Number: VE-ABBVIE-13P-178-1164889-00

PATIENT
  Age: 45 Year
  Sex: Female
  Weight: 67 kg

DRUGS (1)
  1. HUMIRA [Suspect]
     Indication: CROHN^S DISEASE
     Route: 058
     Dates: start: 20080301, end: 201309

REACTIONS (3)
  - Ovarian neoplasm [Recovering/Resolving]
  - Renal failure [Recovered/Resolved]
  - Haemoglobin decreased [Recovered/Resolved]
